FAERS Safety Report 13387218 (Version 1)
Quarter: 2017Q1

REPORT INFORMATION
  Report Type: Spontaneous
  Country: US (occurrence: US)
  Receive Date: 20170330
  Receipt Date: 20170330
  Transmission Date: 20170429
  Serious: Yes (Hospitalization, Other)
  Sender: FDA-Public Use
  Company Number: US-NOVOPROD-537511

PATIENT
  Age: 80 Year
  Sex: Female

DRUGS (3)
  1. METOPROLOL. [Concomitant]
     Active Substance: METOPROLOL
     Indication: PRODUCT USED FOR UNKNOWN INDICATION
     Dosage: UNK
     Route: 048
  2. AMLODIPINE BESYLATE. [Concomitant]
     Active Substance: AMLODIPINE BESYLATE
     Indication: PRODUCT USED FOR UNKNOWN INDICATION
     Dosage: UNK
     Route: 048
  3. LEVEMIR [Suspect]
     Active Substance: INSULIN DETEMIR
     Indication: TYPE 2 DIABETES MELLITUS
     Dosage: 12 U, QD AT NIGHT
     Route: 058
     Dates: start: 2014

REACTIONS (4)
  - Pharyngeal oedema [Not Recovered/Not Resolved]
  - Blindness [Not Recovered/Not Resolved]
  - Palpitations [Not Recovered/Not Resolved]
  - Pancreatic cyst [Not Recovered/Not Resolved]

NARRATIVE: CASE EVENT DATE: 2014
